FAERS Safety Report 5454037-4 (Version None)
Quarter: 2007Q3

REPORT INFORMATION
  Report Type: 
  Country: None (occurrence: None)
  Receive Date: 20070917
  Receipt Date: 20070228
  Transmission Date: 20080115
  Serious: No
  Sender: FDA-Public Use
  Company Number: US-ASTRAZENECA-2006UW04581

PATIENT
  Sex: Female
  Weight: 181.8 kg

DRUGS (10)
  1. SEROQUEL [Suspect]
     Dosage: 25-200 MG
     Route: 048
     Dates: start: 19990301
  2. SEROQUEL [Suspect]
     Dosage: 25-200 MG
     Route: 048
     Dates: start: 19980601, end: 19981101
  3. SEROQUEL [Suspect]
     Route: 048
     Dates: start: 20011101, end: 20011201
  4. ZYPREXA [Suspect]
     Indication: SCHIZOAFFECTIVE DISORDER
     Dosage: 5.0-7.5 MG
     Dates: start: 19970601, end: 20010801
  5. ZYPREXA [Suspect]
     Indication: DEPRESSION
     Dosage: 5.0-7.5 MG
     Dates: start: 19970601, end: 20010801
  6. ZYPREXA [Suspect]
     Dosage: 5.0-10.0 MG
     Dates: start: 20000901, end: 20010701
  7. ZYPREXA [Suspect]
     Dosage: 5.0-10.0 MG
     Dates: start: 20000901, end: 20010701
  8. RISPERDAL [Suspect]
     Indication: SCHIZOAFFECTIVE DISORDER
     Dates: start: 19960201, end: 19960301
  9. RISPERDAL [Suspect]
     Indication: DEPRESSION
     Dates: start: 19960201, end: 19960301
  10. ABILIFY [Concomitant]
     Dates: start: 20030101

REACTIONS (2)
  - INSULIN RESISTANCE [None]
  - TYPE 2 DIABETES MELLITUS [None]
